FAERS Safety Report 12894364 (Version 1)
Quarter: 2016Q4

REPORT INFORMATION
  Report Type: Spontaneous
  Country: TW (occurrence: TW)
  Receive Date: 20161028
  Receipt Date: 20161028
  Transmission Date: 20170207
  Serious: Yes (Hospitalization, Other)
  Sender: FDA-Public Use
  Company Number: TW-PAR PHARMACEUTICAL COMPANIES-2016SCPR016045

PATIENT
  Age: 26 Year
  Sex: Male

DRUGS (3)
  1. KETALAR [Suspect]
     Active Substance: KETAMINE HYDROCHLORIDE
     Dosage: 10 G, UNKNOWN
     Route: 065
  2. KETALAR [Suspect]
     Active Substance: KETAMINE HYDROCHLORIDE
     Indication: SUBSTANCE USE
     Dosage: UNK UNK, UNKNOWN
     Route: 065
  3. KETALAR [Suspect]
     Active Substance: KETAMINE HYDROCHLORIDE
     Dosage: 6 G, DAILY
     Route: 065

REACTIONS (10)
  - Major depression [Recovered/Resolved]
  - Drug tolerance [Unknown]
  - Disturbance in social behaviour [Unknown]
  - Impaired work ability [Unknown]
  - Pollakiuria [Unknown]
  - Withdrawal syndrome [Unknown]
  - Poor personal hygiene [Unknown]
  - Abdominal pain [Unknown]
  - Drug dependence [Unknown]
  - Drug abuse [Unknown]
